FAERS Safety Report 21312474 (Version 1)
Quarter: 2022Q3

REPORT INFORMATION
  Report Type: Spontaneous
  Country: US (occurrence: None)
  Receive Date: 20220909
  Receipt Date: 20220909
  Transmission Date: 20221026
  Serious: No
  Sender: FDA-Public Use
  Company Number: US-ARIS GLOBAL-202206-1139

PATIENT
  Age: 56 Year
  Sex: Female

DRUGS (7)
  1. OXERVATE [Suspect]
     Active Substance: CENEGERMIN-BKBJ
     Indication: Neurotrophic keratopathy
     Route: 047
     Dates: start: 20220611
  2. ESTRADIOL [Concomitant]
     Active Substance: ESTRADIOL
  3. ZOLOFT [Concomitant]
     Active Substance: SERTRALINE HYDROCHLORIDE
  4. RESTASIS [Concomitant]
     Active Substance: CYCLOSPORINE
  5. VITAMIN E [Concomitant]
     Active Substance: .ALPHA.-TOCOPHEROL
  6. FISH OIL [Concomitant]
     Active Substance: FISH OIL
     Dosage: 100-160 MG
  7. BIOTIN [Concomitant]
     Active Substance: BIOTIN

REACTIONS (1)
  - Eye pain [Unknown]

NARRATIVE: CASE EVENT DATE: 20220615
